FAERS Safety Report 15473375 (Version 3)
Quarter: 2018Q4

REPORT INFORMATION
  Report Type: Report from Study
  Country: UG (occurrence: UG)
  Receive Date: 20181008
  Receipt Date: 20181217
  Transmission Date: 20190205
  Serious: Yes (Congenital Anomaly)
  Sender: FDA-Public Use
  Company Number: UG-VIIV HEALTHCARE LIMITED-UG2018GSK178460

PATIENT
  Sex: Female
  Weight: 2.9 kg

DRUGS (4)
  1. DOLUTEGRAVIR [Suspect]
     Active Substance: DOLUTEGRAVIR
     Dosage: 50 MG, QD
     Route: 063
     Dates: start: 20180819
  2. NEVIRAPINE. [Concomitant]
     Active Substance: NEVIRAPINE
     Dosage: 1.5 ML, QD
     Dates: start: 20180820
  3. DOLUTEGRAVIR [Suspect]
     Active Substance: DOLUTEGRAVIR
     Indication: HIV INFECTION
     Dosage: 50 MG, QD
     Route: 064
     Dates: start: 20160626, end: 20180819
  4. COTRIMOXAZOLE [Concomitant]
     Active Substance: SULFAMETHOXAZOLE\TRIMETHOPRIM
     Dosage: 120 MG, QD
     Dates: start: 20181001

REACTIONS (3)
  - Umbilical hernia [Not Recovered/Not Resolved]
  - Birth mark [Not Recovered/Not Resolved]
  - Exposure via breast milk [Unknown]

NARRATIVE: CASE EVENT DATE: 20180819
